FAERS Safety Report 8101313-2 (Version None)
Quarter: 2012Q1

REPORT INFORMATION
  Report Type: 
  Country: None (occurrence: None)
  Receive Date: 20120131
  Receipt Date: 20120130
  Transmission Date: 20120608
  Serious: Yes (Death, Life-Threatening, Hospitalization, Other)
  Sender: FDA-Public Use
  Company Number: JP-PFIZER INC-2011307932

PATIENT
  Age: 70 Year
  Sex: Male
  Weight: 48 kg

DRUGS (14)
  1. ALMARL [Concomitant]
     Indication: HYPERTENSION
     Dosage: 10 MG, 2X/DAY
     Route: 048
  2. VOLTAREN [Concomitant]
     Indication: INTERVERTEBRAL DISC PROTRUSION
     Dosage: 50 MG, 1X/DAY
     Route: 054
     Dates: start: 20110712
  3. RABEPRAZOLE SODIUM [Concomitant]
     Indication: GASTRIC ULCER
     Dosage: 10 MG, 1X/DAY
     Route: 048
     Dates: start: 20110712
  4. ZANTAC [Concomitant]
     Indication: GASTRITIS
     Dosage: 150 MG, 2X/DAY
     Route: 048
  5. NEUROTROPIN [Concomitant]
     Indication: INTERVERTEBRAL DISC PROTRUSION
     Dosage: 8 IU, 2X/DAY
     Route: 048
     Dates: start: 20110603
  6. NORVASC [Concomitant]
     Indication: HYPERTENSION
     Dosage: 5 MG, 2X/DAY
     Route: 048
  7. TRICHLORMETHIAZIDE [Concomitant]
     Indication: HYPERTENSION
     Dosage: 1 MG, 1X/DAY
     Route: 048
  8. LOXONIN [Concomitant]
     Indication: INTERVERTEBRAL DISC PROTRUSION
     Dosage: 60 MG, 3X/DAY
     Route: 048
     Dates: start: 20110603
  9. OLMESARTAN MEDOXOMIL [Concomitant]
     Indication: HYPERTENSION
     Dosage: 20 MG, 2X/DAY
     Route: 048
  10. SELBEX [Concomitant]
     Indication: GASTRITIS
     Dosage: 50 MG, 3X/DAY
     Route: 048
  11. ADVAIR DISKUS 100/50 [Concomitant]
     Indication: EMPHYSEMA
     Dosage: 250 UG, 2X/DAY
     Route: 055
     Dates: start: 20110812
  12. SUMILU STICK [Concomitant]
     Indication: INTERVERTEBRAL DISC PROTRUSION
     Dosage: UNK
     Route: 003
     Dates: start: 20110603
  13. LYRICA [Suspect]
     Indication: INTERVERTEBRAL DISC PROTRUSION
     Dosage: 75 MG, 2X/DAY
     Route: 048
     Dates: start: 20111213
  14. LENDORMIN [Concomitant]
     Indication: INSOMNIA
     Dosage: 0.25 MG, 1X/DAY
     Route: 048
     Dates: start: 20110816

REACTIONS (5)
  - PULMONARY ALVEOLAR HAEMORRHAGE [None]
  - NEOPLASM MALIGNANT [None]
  - PNEUMONIA [None]
  - DISSEMINATED INTRAVASCULAR COAGULATION [None]
  - CARDIAC FAILURE [None]
